FAERS Safety Report 4794982-6 (Version None)
Quarter: 2005Q4

REPORT INFORMATION
  Report Type: 
  Country: None (occurrence: None)
  Receive Date: 20051006
  Receipt Date: 20050920
  Transmission Date: 20060501
  Serious: Yes (Hospitalization)
  Sender: FDA-Public Use
  Company Number: 218143

PATIENT
  Age: 49 Year
  Sex: Male

DRUGS (4)
  1. AVASTIN [Suspect]
     Indication: COLON CANCER
     Dosage: 412 MG, Q2W, INTRAVENOUS
     Route: 042
     Dates: start: 20050706, end: 20050706
  2. OXALIPLATIN (OXALIPLATIN) [Suspect]
     Indication: COLON CANCER
     Dosage: 175 MG, Q2W, INTRAVENOUS
     Route: 042
     Dates: start: 20050706, end: 20050706
  3. LEUCOVORIN (LEUCOVORIN SODIUM) [Suspect]
     Indication: COLON CANCER
     Dosage: 824 MG, QDX2D/14DC, INTRAVENOUS
     Route: 042
     Dates: start: 20050706, end: 20050707
  4. FLUOROURACIL [Suspect]
     Indication: COLON CANCER
     Dosage: SEE IMAGE
     Route: 042
     Dates: start: 20050706, end: 20050707

REACTIONS (6)
  - CHOLECYSTITIS [None]
  - DYSPEPSIA [None]
  - MUCOSAL INFLAMMATION [None]
  - PERITONITIS [None]
  - RECTAL PERFORATION [None]
  - STAPHYLOCOCCAL INFECTION [None]
